FAERS Safety Report 4681819-9 (Version None)
Quarter: 2005Q2

REPORT INFORMATION
  Report Type: 
  Country: None (occurrence: None)
  Receive Date: 20050602
  Receipt Date: 20050517
  Transmission Date: 20051028
  Serious: Yes (Hospitalization)
  Sender: FDA-Public Use
  Company Number: DSA_2157_2005

PATIENT
  Age: 60 Year
  Sex: Female
  Weight: 79 kg

DRUGS (1)
  1. EFLORNITHINE HYDROCHLORIDE /PLACEBO [Suspect]
     Indication: HIRSUTISM
     Dosage: 1 DF BID TP
     Route: 064
     Dates: start: 20041202

REACTIONS (13)
  - ALANINE AMINOTRANSFERASE INCREASED [None]
  - ATRIAL FIBRILLATION [None]
  - BLOOD LACTATE DEHYDROGENASE INCREASED [None]
  - CARDIAC VALVE SCLEROSIS [None]
  - GAMMA-GLUTAMYLTRANSFERASE INCREASED [None]
  - HAEMATOCRIT INCREASED [None]
  - HYPERTONIA [None]
  - INTERNATIONAL NORMALISED RATIO INCREASED [None]
  - MITRAL VALVE INCOMPETENCE [None]
  - PROTHROMBIN TIME PROLONGED [None]
  - TACHYARRHYTHMIA [None]
  - THYROID CYST [None]
  - TRICUSPID VALVE INCOMPETENCE [None]
